FAERS Safety Report 8189987-1 (Version None)
Quarter: 2012Q1

REPORT INFORMATION
  Report Type: 
  Country: None (occurrence: None)
  Receive Date: 20120305
  Receipt Date: 20120220
  Transmission Date: 20120608
  Serious: Yes (Life-Threatening, Hospitalization, Other)
  Sender: FDA-Public Use
  Company Number: 2011MA003454

PATIENT
  Sex: Male
  Weight: 10.5461 kg

DRUGS (13)
  1. PREDNISOLONE [Concomitant]
  2. ANTIBIOTIC [Concomitant]
  3. CARAFATE [Concomitant]
  4. MULTIVITAMIN WITH IRON [Concomitant]
  5. AUGMENTIN '125' [Concomitant]
  6. NYSTATIN [Concomitant]
  7. ZANTAC [Concomitant]
  8. RANITIDINE [Concomitant]
  9. METOCLOPRAMIDE HYDROCHLORIDE [Suspect]
     Indication: GASTROOESOPHAGEAL REFLUX DISEASE
     Dosage: 5 MG
     Dates: start: 20080815, end: 20100712
  10. ROUTINE VACCINATIONS [Concomitant]
  11. PREVACID [Concomitant]
  12. BENADRYL [Concomitant]
  13. FLOVENT [Concomitant]

REACTIONS (46)
  - CHOREA [None]
  - CARDIAC MURMUR [None]
  - CRYING [None]
  - PARKINSON'S DISEASE [None]
  - SWELLING FACE [None]
  - PNEUMONIA [None]
  - SINUS TACHYCARDIA [None]
  - ECONOMIC PROBLEM [None]
  - BLOOD POTASSIUM INCREASED [None]
  - ELECTROENCEPHALOGRAM ABNORMAL [None]
  - VENTRICULAR HYPERTROPHY [None]
  - APNOEA [None]
  - SPEECH DISORDER DEVELOPMENTAL [None]
  - URTICARIA [None]
  - DYSPHAGIA [None]
  - VOMITING [None]
  - IMPAIRED GASTRIC EMPTYING [None]
  - EROSIVE OESOPHAGITIS [None]
  - EOSINOPHILIC OESOPHAGITIS [None]
  - FALL [None]
  - CONDITION AGGRAVATED [None]
  - DEVELOPMENTAL DELAY [None]
  - FATIGUE [None]
  - STARING [None]
  - CANDIDIASIS [None]
  - EPILEPSY [None]
  - TARDIVE DYSKINESIA [None]
  - DYSTONIA [None]
  - GASTROOESOPHAGEAL REFLUX DISEASE [None]
  - MOUTH ULCERATION [None]
  - HYDRONEPHROSIS [None]
  - HIATUS HERNIA [None]
  - GAZE PALSY [None]
  - CYANOSIS [None]
  - FAILURE TO THRIVE [None]
  - OESOPHAGITIS ULCERATIVE [None]
  - PALLOR [None]
  - VIRAL INFECTION [None]
  - RADIUS FRACTURE [None]
  - EXTRAPYRAMIDAL DISORDER [None]
  - ANAEMIA [None]
  - ATRIAL SEPTAL DEFECT [None]
  - EMOTIONAL DISORDER [None]
  - TONSILLAR DISORDER [None]
  - HYPERTENSION [None]
  - ULNA FRACTURE [None]
